FAERS Safety Report 10410477 (Version 3)
Quarter: 2015Q1

REPORT INFORMATION
  Report Type: Spontaneous
  Country: US (occurrence: US)
  Receive Date: 20140826
  Receipt Date: 20150226
  Transmission Date: 20150720
  Serious: Yes (Other)
  Sender: FDA-Public Use
  Company Number: US-GLAXOSMITHKLINE-A1086569A

PATIENT
  Age: 58 Year
  Sex: Male
  Weight: 59 kg

DRUGS (7)
  1. EXCEDRIN [Concomitant]
     Active Substance: ACETAMINOPHEN\ASPIRIN\CAFFEINE
  2. VOTRIENT [Suspect]
     Active Substance: PAZOPANIB HYDROCHLORIDE
     Indication: RENAL CANCER
     Dosage: 800 MG, QD
     Route: 048
     Dates: start: 201209
  3. LISINOPRIL. [Concomitant]
     Active Substance: LISINOPRIL
  4. AMLODIPINE [Concomitant]
     Active Substance: AMLODIPINE BESYLATE
  5. REMERON [Concomitant]
     Active Substance: MIRTAZAPINE
  6. OXYCONTIN [Concomitant]
     Active Substance: OXYCODONE HYDROCHLORIDE
  7. SLOW-MAG [Concomitant]
     Active Substance: MAGNESIUM CHLORIDE

REACTIONS (2)
  - Brain neoplasm [Unknown]
  - Hair colour changes [Unknown]

NARRATIVE: CASE EVENT DATE: 201303
